FAERS Safety Report 18304919 (Version 1)
Quarter: 2020Q3

REPORT INFORMATION
  Report Type: Spontaneous
  Country: US (occurrence: US)
  Receive Date: 20200923
  Receipt Date: 20200923
  Transmission Date: 20201103
  Serious: No
  Sender: FDA-Public Use
  Company Number: US-PFIZER INC-2020364002

PATIENT
  Sex: Male

DRUGS (2)
  1. VYNDAQEL [Suspect]
     Active Substance: TAFAMIDIS MEGLUMINE
     Dosage: UNK
     Route: 065
  2. VYNDAMAX [Suspect]
     Active Substance: TAFAMIDIS
     Dosage: UNK
     Route: 065

REACTIONS (12)
  - Renal pain [Unknown]
  - Hypoacusis [Unknown]
  - Malaise [Unknown]
  - Abdominal pain upper [Unknown]
  - Back pain [Unknown]
  - Dizziness [Unknown]
  - Arthralgia [Unknown]
  - Abdominal distension [Unknown]
  - Balance disorder [Unknown]
  - Pain [Unknown]
  - Gait disturbance [Unknown]
  - Pain in extremity [Unknown]
